FAERS Safety Report 9033060 (Version 1)
Quarter: 2013Q1

REPORT INFORMATION
  Report Type: Spontaneous
  Country: CN (occurrence: None)
  Receive Date: 20130110
  Receipt Date: 20130110
  Transmission Date: 20140127
  Serious: Yes (Other)
  Sender: FDA-Public Use
  Company Number: VAL_01251_2013

PATIENT
  Age: 68 Year
  Sex: Male
  Weight: 50 kg

DRUGS (1)
  1. BENAZEPRIL (BENAZEPRIL) [Suspect]
     Indication: HYPERTENSION
     Route: 048
     Dates: start: 20091117, end: 20091123

REACTIONS (3)
  - Cough [None]
  - Blood pressure systolic increased [None]
  - Body temperature decreased [None]
